FAERS Safety Report 6164366-7 (Version None)
Quarter: 2009Q2

REPORT INFORMATION
  Report Type: 
  Country: None (occurrence: None)
  Receive Date: 20090421
  Receipt Date: 20090414
  Transmission Date: 20091009
  Serious: Yes (Death)
  Sender: FDA-Public Use
  Company Number: 2009003669

PATIENT
  Age: 22 Year
  Sex: Female
  Weight: 65.7716 kg

DRUGS (5)
  1. PROVIGIL [Suspect]
     Indication: NARCOLEPSY
     Dosage: (200MG, 1 IN 1 D);(400MG, 1 IN 1 D)(600MG, 1 IN 1 D)(400MG, 2 IN D), ORAL
     Route: 048
     Dates: start: 20070101, end: 20071205
  2. PROVIGIL [Suspect]
     Indication: NARCOLEPSY
     Dosage: (200MG, 1 IN 1 D);(400MG, 1 IN 1 D)(600MG, 1 IN 1 D)(400MG, 2 IN D), ORAL
     Route: 048
     Dates: start: 20071205, end: 20081009
  3. PROVIGIL [Suspect]
     Indication: NARCOLEPSY
     Dosage: (200MG, 1 IN 1 D);(400MG, 1 IN 1 D)(600MG, 1 IN 1 D)(400MG, 2 IN D), ORAL
     Route: 048
     Dates: start: 20081009, end: 20081015
  4. PROVIGIL [Suspect]
     Indication: NARCOLEPSY
     Dosage: (200MG, 1 IN 1 D);(400MG, 1 IN 1 D)(600MG, 1 IN 1 D)(400MG, 2 IN D), ORAL
     Route: 048
     Dates: start: 20070501
  5. RITALIN [Concomitant]

REACTIONS (14)
  - BRAIN HERNIATION [None]
  - BRAIN OEDEMA [None]
  - CARDIAC VENTRICULAR DISORDER [None]
  - CELL DEATH [None]
  - DRUG INEFFECTIVE [None]
  - FATIGUE [None]
  - ISCHAEMIA [None]
  - MYOCARDIAL FIBROSIS [None]
  - MYOCARDITIS [None]
  - PULMONARY CONGESTION [None]
  - PULMONARY OEDEMA [None]
  - RENAL DISORDER [None]
  - SOMNOLENCE [None]
  - SPLEEN CONGESTION [None]
